FAERS Safety Report 5323868-3 (Version None)
Quarter: 2007Q2

REPORT INFORMATION
  Report Type: 
  Country: None (occurrence: None)
  Receive Date: 20070509
  Receipt Date: 20070509
  Transmission Date: 20071010
  Serious: Yes (Other)
  Sender: FDA-Public Use
  Company Number: None

PATIENT
  Age: 39 Year
  Sex: Female
  Weight: 131.5431 kg

DRUGS (1)
  1. BUDEPRION XL 300 MG TABLETS [Suspect]
     Indication: DEPRESSION
     Dosage: 1 TABLET DAILEY PO
     Route: 048

REACTIONS (5)
  - ANXIETY [None]
  - DRUG EFFECT DECREASED [None]
  - HEART RATE INCREASED [None]
  - INSOMNIA [None]
  - PHARMACEUTICAL PRODUCT COMPLAINT [None]
